FAERS Safety Report 10506170 (Version 1)
Quarter: 2014Q4

REPORT INFORMATION
  Report Type: Spontaneous
  Country: US (occurrence: US)
  Receive Date: 20141009
  Receipt Date: 20141009
  Transmission Date: 20150528
  Serious: Yes (Hospitalization)
  Sender: FDA-Public Use
  Company Number: US-ACCORD-026303

PATIENT
  Age: 34 Year
  Sex: Male
  Weight: 105 kg

DRUGS (20)
  1. AMLODIPINE [Suspect]
     Active Substance: AMLODIPINE BESYLATE
     Indication: HYPERTENSION
     Route: 048
     Dates: start: 20140310, end: 20140322
  2. CARVEDILOL/CARVEDILOL HYDROCHLODRIDE [Concomitant]
     Dosage: CARVEDILOL 6.25 MG PO BID
     Route: 048
     Dates: start: 20140307
  3. METHYLPREDNISOLONE. [Concomitant]
     Active Substance: METHYLPREDNISOLONE
     Dosage: METHYLPREDNISOLONE 60 MG IV Q8H
     Route: 042
     Dates: start: 20140307
  4. LORAZEPAM. [Concomitant]
     Active Substance: LORAZEPAM
     Indication: VOMITING
     Dosage: LORAZEPAM 0.5 MG IV Q6H PRN
     Route: 042
     Dates: start: 20140307
  5. INSULIN LISPRO/INSULIN LISPRO PROTAMINE SUSPE [Concomitant]
     Dosage: INSULIN LISPRO SLIDING SCALE SQ TID AC(PRIOR TO MEAL)
     Route: 058
     Dates: start: 20140307
  6. ONDANSETRON [Concomitant]
     Active Substance: ONDANSETRON
     Dates: start: 20140311, end: 20140312
  7. OXYCODONE/OXYCODONE HYDROCHLORIDE/OXYCODONE PECTINATE/OXYCODONE TEREPHTHALATE [Concomitant]
     Indication: PAIN
     Dosage: OXYCODONE IR 30 MG PO Q4H PRN
     Route: 048
     Dates: start: 20140307
  8. BUDESONIDE. [Concomitant]
     Active Substance: BUDESONIDE
     Route: 048
     Dates: start: 20140307
  9. INSULIN DETEMIR [Concomitant]
     Active Substance: INSULIN DETEMIR
     Dosage: INSULIN DETEMIR 50 UNITS SQ Q12H
     Route: 058
     Dates: start: 20140307
  10. PREGABALIN. [Concomitant]
     Active Substance: PREGABALIN
     Dosage: PREGABALIN 100 MG PO BID
     Route: 048
     Dates: start: 20140307
  11. PROMETHAZINE [Concomitant]
     Active Substance: PROMETHAZINE\PROMETHAZINE HYDROCHLORIDE
     Indication: VOMITING
     Dosage: PROMETHAZINE 12.5 MG IV Q6H PRN
     Route: 042
     Dates: start: 20140307
  12. LEVOFLOXACIN/LEVOFLOXACIN MESYLATE [Concomitant]
     Route: 042
     Dates: start: 20140307
  13. PANTOPRAZOLE [Concomitant]
     Active Substance: PANTOPRAZOLE SODIUM
     Dosage: PANTOPRAZOLE 40 MG IV Q12H
     Route: 042
     Dates: start: 20140307
  14. TACROLIMUS. [Concomitant]
     Active Substance: TACROLIMUS
     Dosage: TACROLIMUS 2 MG CONTINUOUS IV INFUSION Q24H
     Route: 042
     Dates: start: 20140307
  15. HYDROMORPHONE/HYDROMORPHONE HYDROCHLORIDE [Concomitant]
     Indication: PAIN
     Dosage: HYDROMORPHONE 2 MG IV Q4H PRN
     Route: 042
     Dates: start: 20140307
  16. METFORMIN [Concomitant]
     Active Substance: METFORMIN HYDROCHLORIDE
     Dosage: METFORMIN 1000 MG PO BID
     Route: 048
     Dates: start: 20140307
  17. ACICLOVIR [Concomitant]
     Active Substance: ACYCLOVIR
     Dosage: ACYCLOVIR 350 MG IV Q12H
     Route: 042
     Dates: start: 20140307
  18. DAPSONE. [Concomitant]
     Active Substance: DAPSONE
     Route: 048
     Dates: start: 20140307
  19. BUPROPION/BUPROPION HYDROCHLORIDE [Concomitant]
     Dosage: BUPROPION 150 MG PO BID
     Route: 048
     Dates: start: 20140307
  20. CASPOFUNGIN [Concomitant]
     Active Substance: CASPOFUNGIN
     Route: 042
     Dates: start: 20140307

REACTIONS (1)
  - Hepatotoxicity [Recovered/Resolved]
